FAERS Safety Report 9095439 (Version 1)
Quarter: 2013Q1

REPORT INFORMATION
  Report Type: Spontaneous
  Country: US (occurrence: None)
  Receive Date: 20130123
  Receipt Date: 20130123
  Transmission Date: 20140127
  Serious: Yes (Death)
  Sender: FDA-Public Use
  Company Number: 2013-0276

PATIENT
  Age: 32 Year
  Sex: Female
  Weight: 181.4 kg

DRUGS (3)
  1. SOMATULINE DEPOT [Suspect]
     Indication: ACROMEGALY
     Dosage: 1 IN 2 WK
     Route: 058
     Dates: start: 2009
  2. SOMAVERT (PEGVISOMANT) [Concomitant]
  3. SANDOSTATIN (OCTREOTIDE) [Concomitant]

REACTIONS (3)
  - Transient ischaemic attack [None]
  - Cardiomegaly [None]
  - Inappropriate schedule of drug administration [None]
